FAERS Safety Report 5307121-X (Version None)
Quarter: 2007Q2

REPORT INFORMATION
  Report Type: 
  Country: None (occurrence: None)
  Receive Date: 20070423
  Receipt Date: 20070423
  Transmission Date: 20071010
  Serious: Yes (Hospitalization)
  Sender: FDA-Public Use
  Company Number: None

PATIENT
  Sex: Female
  Weight: 40.8237 kg

DRUGS (6)
  1. FLUOROURACIL [Suspect]
     Indication: COLON CANCER
     Dosage: 730 MG D1, 8, 15, 22, 29, 36  IV
     Route: 042
     Dates: start: 20070130
  2. IMODIUM [Concomitant]
  3. NYSTATIN [Concomitant]
  4. LORCET-HD [Concomitant]
  5. XANAX [Concomitant]
  6. PRILOSEC [Concomitant]

REACTIONS (5)
  - ANOREXIA [None]
  - DEHYDRATION [None]
  - DIARRHOEA [None]
  - DRUG INEFFECTIVE [None]
  - NAUSEA [None]
